FAERS Safety Report 8438701-0 (Version None)
Quarter: 2012Q2

REPORT INFORMATION
  Report Type: 
  Country: None (occurrence: None)
  Receive Date: 20120611
  Receipt Date: 20120611
  Transmission Date: 20120825
  Serious: No
  Sender: FDA-Public Use
  Company Number: None

PATIENT
  Sex: Male
  Weight: 171.3 kg

DRUGS (10)
  1. LISINOPRIL [Concomitant]
  2. POTASSIUM ACETATE [Concomitant]
  3. TRIAMTERENE AND HYDROCHLOROTHIAZIDE [Concomitant]
  4. CASODEX [Suspect]
     Dosage: 4600 MG
  5. PROAIR HFA [Concomitant]
  6. LEUPROLIDE ACETATE [Suspect]
     Dosage: 80 MG
  7. LASIX [Concomitant]
  8. TRAMADOL HCL [Concomitant]
  9. TRAZODONE HCL [Concomitant]
  10. VICODIN [Concomitant]

REACTIONS (2)
  - GLYCOSYLATED HAEMOGLOBIN INCREASED [None]
  - BLOOD GLUCOSE INCREASED [None]
